FAERS Safety Report 9127360 (Version 2)
Quarter: 2013Q4

REPORT INFORMATION
  Report Type: Spontaneous
  Country: FR (occurrence: FR)
  Receive Date: 20130122
  Receipt Date: 20131007
  Transmission Date: 20140711
  Serious: Yes (Hospitalization)
  Sender: FDA-Public Use
  Company Number: PHHY2013FR004766

PATIENT
  Age: 70 Year
  Sex: Male

DRUGS (9)
  1. TASIGNA [Suspect]
     Indication: CHRONIC MYELOID LEUKAEMIA
     Dosage: 800 MG, QD
     Route: 048
     Dates: start: 20110707, end: 20121005
  2. LAROXYL [Concomitant]
  3. DEPAKINE [Concomitant]
  4. HYPERIUM [Concomitant]
  5. BISOPROLOL [Concomitant]
  6. AMLODIPINE [Concomitant]
  7. SEROPLEX [Concomitant]
  8. ZOLPIDEM [Concomitant]
  9. SPRYCEL [Concomitant]

REACTIONS (2)
  - Peripheral arterial occlusive disease [Recovered/Resolved with Sequelae]
  - Pain in extremity [Unknown]
